FAERS Safety Report 8664338 (Version 2)
Quarter: 2013Q4

REPORT INFORMATION
  Report Type: Spontaneous
  Country: DK (occurrence: DK)
  Receive Date: 20120713
  Receipt Date: 20131202
  Transmission Date: 20140711
  Serious: Yes (Hospitalization, Other)
  Sender: FDA-Public Use
  Company Number: DK-PFIZER INC-2012160851

PATIENT
  Age: 57 Year
  Sex: Female

DRUGS (2)
  1. CARBOPLATIN [Suspect]
     Indication: UTERINE CANCER
     Dosage: 630 MG, 1 TIME EVERY THIRD WEEK
     Route: 042
     Dates: start: 20100503, end: 20100902
  2. TAXOL [Suspect]
     Indication: UTERINE CANCER
     Dosage: 318 MG, 1 TIME EVERY THIRD WEEK
     Route: 042
     Dates: start: 20100503, end: 20100902

REACTIONS (4)
  - Pain [Not Recovered/Not Resolved]
  - Quality of life decreased [Not Recovered/Not Resolved]
  - Myoclonus [Not Recovered/Not Resolved]
  - Convulsion [Unknown]
